FAERS Safety Report 4716454-7 (Version None)
Quarter: 2005Q3

REPORT INFORMATION
  Report Type: 
  Country: None (occurrence: None)
  Receive Date: 20050713
  Receipt Date: 20050707
  Transmission Date: 20060218
  Serious: Yes (Hospitalization)
  Sender: FDA-Public Use
  Company Number: UKP05000240

PATIENT
  Age: 55 Year
  Sex: Female

DRUGS (3)
  1. DIDRONEL [Suspect]
     Indication: OSTEOPENIA
  2. HORMONES AND RELATED AGENTS [Concomitant]
  3. OSTEOCARE (CALCIUM, MAGNESIUM, ZINC, COLECALCIFEROL) [Concomitant]

REACTIONS (3)
  - ABDOMINAL PAIN [None]
  - ENDOMETRIOSIS [None]
  - VESICOURETERAL REFLUX SURGERY [None]
